FAERS Safety Report 21075943 (Version 1)
Quarter: 2022Q3

REPORT INFORMATION
  Report Type: Report from Study
  Country: US (occurrence: US)
  Receive Date: 20220713
  Receipt Date: 20220713
  Transmission Date: 20221026
  Serious: Yes (Other)
  Sender: FDA-Public Use
  Company Number: US-BAYER-2022A096819

PATIENT
  Sex: Male

DRUGS (5)
  1. VITRAKVI [Suspect]
     Active Substance: LAROTRECTINIB
     Indication: Lung neoplasm malignant
     Dosage: 100 MG, BID
     Route: 048
     Dates: start: 20220307
  2. ATORVASTATIN CALCIUM [Concomitant]
     Active Substance: ATORVASTATIN CALCIUM
  3. OMEPRAZOLE [Concomitant]
     Active Substance: OMEPRAZOLE
  4. CELEBREX [Concomitant]
     Active Substance: CELECOXIB
  5. PROBIOTIC ACIDOPHILUS [CALCIUM PHOSPHATE DIBASIC;LACTOBACILLUS ACI [Concomitant]

REACTIONS (1)
  - Neuropathy peripheral [None]
